FAERS Safety Report 4416600-9 (Version None)
Quarter: 2004Q2

REPORT INFORMATION
  Report Type: 
  Country: None (occurrence: None)
  Receive Date: 20040630
  Receipt Date: 20040527
  Transmission Date: 20050107
  Serious: Yes (Other)
  Sender: FDA-Public Use
  Company Number: ENTC2004-0097

PATIENT
  Age: 23 Year
  Sex: Male

DRUGS (3)
  1. STALEVO 100 [Suspect]
     Indication: MUSCLE DISORDER
     Dosage: 350 MG, ORAL
     Route: 048
     Dates: start: 20040201, end: 20040520
  2. PAXIL [Concomitant]
  3. CLONAZEPAM [Concomitant]

REACTIONS (2)
  - DIFFICULTY IN WALKING [None]
  - PYREXIA [None]
